FAERS Safety Report 10658578 (Version 1)
Quarter: 2014Q4

REPORT INFORMATION
  Report Type: Spontaneous
  Country: US (occurrence: US)
  Receive Date: 20141217
  Receipt Date: 20141217
  Transmission Date: 20150529
  Serious: No
  Sender: FDA-Public Use
  Company Number: US-GLAXOSMITHKLINE-A1070054A

PATIENT

DRUGS (1)
  1. VOTRIENT [Suspect]
     Active Substance: PAZOPANIB HYDROCHLORIDE
     Indication: RENAL CANCER
     Dosage: 200 MG STRENGTH. 800 MG ONCE A DAY.
     Route: 048
     Dates: start: 201310

REACTIONS (7)
  - Visual impairment [Unknown]
  - Decreased appetite [Unknown]
  - Weight decreased [Unknown]
  - Hair colour changes [Unknown]
  - Ageusia [Unknown]
  - Asthenia [Unknown]
  - Diarrhoea [Unknown]

NARRATIVE: CASE EVENT DATE: 201404
